FAERS Safety Report 11276439 (Version 1)
Quarter: 2015Q3

REPORT INFORMATION
  Report Type: Spontaneous
  Country: US (occurrence: US)
  Receive Date: 20150716
  Receipt Date: 20150716
  Transmission Date: 20151125
  Serious: No
  Sender: FDA-Public Use
  Company Number: US-009507513-1507USA004347

PATIENT

DRUGS (1)
  1. ZETIA [Suspect]
     Active Substance: EZETIMIBE
     Dosage: UNK
     Route: 048

REACTIONS (6)
  - Liver injury [Unknown]
  - Back disorder [Unknown]
  - Hepatitis C [Unknown]
  - General physical health deterioration [Unknown]
  - Tremor [Unknown]
  - Renal impairment [Unknown]
